FAERS Safety Report 10232405 (Version 1)
Quarter: 2014Q2

REPORT INFORMATION
  Report Type: Spontaneous
  Country: US (occurrence: None)
  Receive Date: 20140611
  Receipt Date: 20140611
  Transmission Date: 20141212
  Serious: Yes (Disabling)
  Sender: FDA-Public Use
  Company Number: None

PATIENT
  Age: 41 Year
  Sex: Female

DRUGS (4)
  1. MOXIFLOXACIN [Suspect]
     Indication: POST PROCEDURAL INFECTION
     Dosage: 400MG (1 TABLET), QD, ORAL
     Route: 048
     Dates: start: 20140606, end: 20140607
  2. MOXIFLOXACIN [Suspect]
     Indication: ENDODONTIC PROCEDURE
     Dosage: 400MG (1 TABLET), QD, ORAL
     Route: 048
     Dates: start: 20140606, end: 20140607
  3. ONDANSETRON [Concomitant]
  4. HYDROCODONE/APAP 5/325 [Concomitant]

REACTIONS (5)
  - Hypoaesthesia [None]
  - Paraesthesia [None]
  - Paraesthesia [None]
  - Paraesthesia [None]
  - Hypoaesthesia [None]
